FAERS Safety Report 6808134-9 (Version None)
Quarter: 2010Q2

REPORT INFORMATION
  Report Type: 
  Country: None (occurrence: None)
  Receive Date: 20100629
  Receipt Date: 20090224
  Transmission Date: 20101027
  Serious: Yes (Other)
  Sender: FDA-Public Use
  Company Number: US-PFIZER INC-2009175894

PATIENT
  Sex: Male

DRUGS (1)
  1. VIAGRA [Suspect]
     Indication: ERECTILE DYSFUNCTION
     Dates: start: 20090222

REACTIONS (8)
  - DIZZINESS [None]
  - DYSPHONIA [None]
  - ERECTION INCREASED [None]
  - FEELING ABNORMAL [None]
  - HOMICIDAL IDEATION [None]
  - INTENTIONAL DRUG MISUSE [None]
  - PENILE HAEMORRHAGE [None]
  - VIOLENCE-RELATED SYMPTOM [None]
